FAERS Safety Report 15239475 (Version 1)
Quarter: 2018Q3

REPORT INFORMATION
  Report Type: Spontaneous
  Country: US (occurrence: US)
  Receive Date: 20180710
  Receipt Date: 20180710
  Transmission Date: 20181010
  Serious: Yes (Life-Threatening, Hospitalization, Other)
  Sender: FDA-Public Use
  Company Number: None

PATIENT
  Age: 61 Year
  Sex: Male
  Weight: 110.68 kg

DRUGS (2)
  1. BUPROPON XL [Suspect]
     Active Substance: BUPROPION HYDROCHLORIDE
     Route: 048
  2. BUPROPION HYDROCHLORIDE. [Suspect]
     Active Substance: BUPROPION HYDROCHLORIDE
     Route: 048

REACTIONS (2)
  - General physical health deterioration [None]
  - Suicidal ideation [None]

NARRATIVE: CASE EVENT DATE: 20180615
